FAERS Safety Report 26134880 (Version 1)
Quarter: 2025Q4

REPORT INFORMATION
  Report Type: Spontaneous
  Country: US (occurrence: None)
  Receive Date: 20251208
  Receipt Date: 20251208
  Transmission Date: 20260117
  Serious: No
  Sender: FDA-CTU
  Company Number: None

PATIENT

DRUGS (2)
  1. TRETINOIN [Suspect]
     Active Substance: TRETINOIN
     Route: 061
  2. TRETINOIN [Suspect]
     Active Substance: TRETINOIN
     Dosage: OTHER QUANTITY : 0.025%;
     Route: 061

REACTIONS (2)
  - Transcription medication error [None]
  - Intercepted product dispensing error [None]
